FAERS Safety Report 25840041 (Version 1)
Quarter: 2025Q3

REPORT INFORMATION
  Report Type: Spontaneous
  Country: CN (occurrence: CN)
  Receive Date: 20250924
  Receipt Date: 20250924
  Transmission Date: 20251020
  Serious: Yes (Death, Hospitalization)
  Sender: GLAND PHARMA LTD
  Company Number: CN-GLANDPHARMA-CN-2025GLNLIT01864

PATIENT
  Age: 74 Year
  Sex: Male
  Weight: 59 kg

DRUGS (13)
  1. DEXAMETHASONE SODIUM PHOSPHATE [Suspect]
     Active Substance: DEXAMETHASONE SODIUM PHOSPHATE
     Indication: Meningitis cryptococcal
     Route: 030
     Dates: start: 2023
  2. AMPHOTERICIN B DEOXYCHOLATE [Concomitant]
     Active Substance: AMPHOTERICIN B DEOXYCHOLATE
     Indication: Meningitis cryptococcal
     Route: 042
     Dates: start: 2023
  3. AMPHOTERICIN B DEOXYCHOLATE [Concomitant]
     Active Substance: AMPHOTERICIN B DEOXYCHOLATE
     Dosage: 6-19
     Route: 042
     Dates: start: 2023
  4. AMPHOTERICIN B DEOXYCHOLATE [Concomitant]
     Active Substance: AMPHOTERICIN B DEOXYCHOLATE
     Dosage: 6-19
     Route: 042
     Dates: start: 2023
  5. AMPHOTERICIN B DEOXYCHOLATE [Concomitant]
     Active Substance: AMPHOTERICIN B DEOXYCHOLATE
     Dosage: 50-89 DAY
     Route: 042
     Dates: start: 2023
  6. AMPHOTERICIN B DEOXYCHOLATE [Concomitant]
     Active Substance: AMPHOTERICIN B DEOXYCHOLATE
     Dosage: 50-89 DAY
     Route: 042
     Dates: start: 2023
  7. FLUCONAZOLE [Concomitant]
     Active Substance: FLUCONAZOLE
     Indication: Meningitis cryptococcal
     Route: 042
     Dates: start: 2023
  8. FLUCONAZOLE [Concomitant]
     Active Substance: FLUCONAZOLE
     Dosage: 6-19 DAY
     Route: 042
     Dates: start: 2023
  9. FLUCONAZOLE [Concomitant]
     Active Substance: FLUCONAZOLE
     Dosage: 20-49 DAY
     Route: 042
     Dates: start: 2023
  10. FLUCONAZOLE [Concomitant]
     Active Substance: FLUCONAZOLE
     Dosage: 90-120 DAY
     Route: 048
     Dates: start: 2023
  11. CEFTRIAXONE [Concomitant]
     Active Substance: CEFTRIAXONE
     Indication: COVID-19
     Dosage: 1-6 DAY
     Route: 042
     Dates: start: 2023
  12. MOLNUPIRAVIR [Concomitant]
     Active Substance: MOLNUPIRAVIR
     Indication: COVID-19
     Dosage: DAYS 1-5
     Route: 048
  13. FLUCYTOSINE [Concomitant]
     Active Substance: FLUCYTOSINE
     Indication: Meningitis cryptococcal
     Dosage: DAYS 20-120
     Route: 048
     Dates: start: 2023

REACTIONS (3)
  - Bacterial infection [Fatal]
  - Drug resistance [Fatal]
  - Product use in unapproved indication [Unknown]

NARRATIVE: CASE EVENT DATE: 20230101
